FAERS Safety Report 8713557 (Version 2)
Quarter: 2012Q4

REPORT INFORMATION
  Report Type: Report from Study
  Country: GR (occurrence: GR)
  Receive Date: 20120808
  Receipt Date: 20121210
  Transmission Date: 20130627
  Serious: Yes (Other)
  Sender: FDA-Public Use
  Company Number: GR-ACTELION-A-CH2012-69248

PATIENT
  Age: 41 Year
  Sex: Male
  Weight: 58 kg

DRUGS (1)
  1. ZAVESCA [Suspect]
     Indication: GAUCHER^S DISEASE
     Dosage: 100 mg, tid
     Route: 048
     Dates: start: 20091013, end: 20120724

REACTIONS (3)
  - Musculoskeletal stiffness [Recovered/Resolved]
  - Mobility decreased [Recovered/Resolved]
  - Bone pain [Unknown]
